FAERS Safety Report 6328671-3 (Version None)
Quarter: 2009Q3

REPORT INFORMATION
  Report Type: 
  Country: None (occurrence: None)
  Receive Date: 20090826
  Receipt Date: 20090814
  Transmission Date: 20100115
  Serious: Yes (Hospitalization)
  Sender: FDA-Public Use
  Company Number: PHHY2009GR34232

PATIENT
  Sex: Male
  Weight: 96 kg

DRUGS (4)
  1. CERTICAN [Suspect]
     Indication: IMMUNOSUPPRESSION
     Dosage: 1.5 MG, UNK
     Route: 048
     Dates: start: 20090720
  2. CERTICAN [Suspect]
     Indication: RENAL TRANSPLANT
  3. MEDROL [Concomitant]
     Indication: IMMUNOSUPPRESSION
     Dosage: 8
     Dates: start: 20090730, end: 20090804
  4. NEORAL SANDIMMUN [Concomitant]
     Indication: IMMUNOSUPPRESSION
     Dosage: 100
     Dates: start: 20090730, end: 20090804

REACTIONS (1)
  - OLIGURIA [None]
